FAERS Safety Report 7346784-4 (Version None)
Quarter: 2011Q1

REPORT INFORMATION
  Report Type: 
  Country: None (occurrence: None)
  Receive Date: 20110311
  Receipt Date: 20110302
  Transmission Date: 20110831
  Serious: Yes (Other)
  Sender: FDA-Public Use
  Company Number: US-JNJFOC-20110301777

PATIENT
  Age: 49 Year
  Sex: Female

DRUGS (5)
  1. REMICADE [Suspect]
     Indication: COLITIS ULCERATIVE
     Route: 042
  2. PROTONIX [Concomitant]
  3. TYLENOL [Concomitant]
     Indication: PREMEDICATION
  4. ZYRTEC [Concomitant]
     Indication: PREMEDICATION
  5. STEROIDS NOS [Concomitant]
     Indication: PREMEDICATION

REACTIONS (3)
  - MUSCLE SPASMS [None]
  - CATATONIA [None]
  - ARTHRALGIA [None]
